FAERS Safety Report 21126251 (Version 1)
Quarter: 2022Q3

REPORT INFORMATION
  Report Type: Spontaneous
  Country: US (occurrence: None)
  Receive Date: 20220725
  Receipt Date: 20220725
  Transmission Date: 20221027
  Serious: Yes (Hospitalization)
  Sender: FDA-Public Use
  Company Number: None

PATIENT
  Age: 58 Year
  Sex: Female

DRUGS (1)
  1. CAPECITABINE [Suspect]
     Active Substance: CAPECITABINE
     Dosage: OTHER QUANTITY : 2000NG AM; 1500MG ;?FREQUENCY : DAILY;?
     Route: 048
     Dates: start: 202204

REACTIONS (4)
  - Lower gastrointestinal haemorrhage [None]
  - Platelet transfusion [None]
  - Diarrhoea [None]
  - Hyperaesthesia [None]

NARRATIVE: CASE EVENT DATE: 20220630
